FAERS Safety Report 12241080 (Version 2)
Quarter: 2016Q2

REPORT INFORMATION
  Report Type: Spontaneous
  Country: US (occurrence: US)
  Receive Date: 20160406
  Receipt Date: 20160603
  Transmission Date: 20160815
  Serious: Yes (Other)
  Sender: FDA-Public Use
  Company Number: US-TEVA-649348ACC

PATIENT
  Age: 20 Year
  Sex: Female

DRUGS (1)
  1. PARAGARD T 380A [Suspect]
     Active Substance: COPPER
     Dates: start: 201406, end: 201603

REACTIONS (2)
  - Device material issue [Unknown]
  - Device breakage [Unknown]

NARRATIVE: CASE EVENT DATE: 20160307
